FAERS Safety Report 12256385 (Version 1)
Quarter: 2016Q2

REPORT INFORMATION
  Report Type: Spontaneous
  Country: US (occurrence: None)
  Receive Date: 20160411
  Receipt Date: 20160411
  Transmission Date: 20160815
  Serious: Yes (Other)
  Sender: FDA-Public Use
  Company Number: None

PATIENT
  Age: 47 Year
  Sex: Male
  Weight: 99.79 kg

DRUGS (3)
  1. LISINOPRIL. [Concomitant]
     Active Substance: LISINOPRIL
  2. MIRALAX [Suspect]
     Active Substance: POLYETHYLENE GLYCOL 3350
     Indication: CONSTIPATION
     Route: 048
     Dates: start: 20100401, end: 20160401
  3. METHADONE [Concomitant]
     Active Substance: METHADONE HYDROCHLORIDE

REACTIONS (10)
  - Type 2 diabetes mellitus [None]
  - Tooth loss [None]
  - Blood testosterone decreased [None]
  - Nausea [None]
  - Dizziness [None]
  - Depression [None]
  - Head injury [None]
  - Asthenia [None]
  - Abdominal distension [None]
  - Hypothalamo-pituitary disorder [None]
